FAERS Safety Report 23128951 (Version 1)
Quarter: 2023Q4

REPORT INFORMATION
  Report Type: Report from Study
  Country: US (occurrence: US)
  Receive Date: 20231031
  Receipt Date: 20231031
  Transmission Date: 20240110
  Serious: Yes (Other)
  Sender: FDA-Public Use
  Company Number: US-002147023-NVSC2023US227525

PATIENT
  Sex: Male

DRUGS (1)
  1. TRIAMCINOLONE ACETONIDE [Suspect]
     Active Substance: TRIAMCINOLONE ACETONIDE
     Dosage: UNK
     Route: 065

REACTIONS (11)
  - Basal cell carcinoma [Unknown]
  - Pyoderma [Unknown]
  - Skin lesion [Unknown]
  - Neurodermatitis [Unknown]
  - Insomnia [Unknown]
  - Skin mass [Unknown]
  - Rash pruritic [Unknown]
  - Psoriasis [Unknown]
  - Rash [Unknown]
  - Dry skin [Unknown]
  - Drug ineffective [Unknown]
